FAERS Safety Report 5416732-2 (Version None)
Quarter: 2007Q3

REPORT INFORMATION
  Report Type: 
  Country: None (occurrence: None)
  Receive Date: 20070816
  Receipt Date: 20070810
  Transmission Date: 20080115
  Serious: Yes (Other)
  Sender: FDA-Public Use
  Company Number: B0481501A

PATIENT
  Age: 64 Year
  Sex: Female

DRUGS (7)
  1. TOPOTECAN [Suspect]
     Indication: OVARIAN CANCER
     Dosage: 1.2MGM2 PER DAY
     Route: 042
     Dates: start: 20050314, end: 20050520
  2. PACLITAXEL [Suspect]
     Indication: DRUG USE FOR UNKNOWN INDICATION
     Dates: start: 20030901, end: 20060712
  3. CARBOPLATIN [Suspect]
     Indication: DRUG USE FOR UNKNOWN INDICATION
     Dosage: 1168MG CUMULATIVE DOSE
     Dates: start: 20030901, end: 20060526
  4. DOXIL [Suspect]
     Indication: DRUG USE FOR UNKNOWN INDICATION
     Dosage: 391.5MG CUMULATIVE DOSE
     Dates: start: 20051124, end: 20060331
  5. DOCETAXEL [Suspect]
     Indication: DRUG USE FOR UNKNOWN INDICATION
     Dosage: 442.4MG CUMULATIVE DOSE
     Dates: start: 20070210, end: 20070424
  6. FLUCONAZOLE [Concomitant]
     Dates: start: 20070725
  7. NEUPOGEN [Concomitant]
     Route: 058
     Dates: start: 20030101, end: 20070707

REACTIONS (1)
  - ACUTE MYELOID LEUKAEMIA [None]
